FAERS Safety Report 17533735 (Version 1)
Quarter: 2020Q1

REPORT INFORMATION
  Report Type: Spontaneous
  Country: US (occurrence: US)
  Receive Date: 20200312
  Receipt Date: 20200312
  Transmission Date: 20200409
  Serious: Yes (Disabling, Other)
  Sender: FDA-Public Use
  Company Number: None

PATIENT
  Age: 28 Year
  Sex: Female
  Weight: 48.6 kg

DRUGS (7)
  1. BUPROPION XL 150 [Suspect]
     Active Substance: BUPROPION
  2. CBD DROPS (ONYX + ROSE BROAD SPECTRUM) [Concomitant]
  3. MELATONIN [Concomitant]
     Active Substance: MELATONIN
  4. VENTOLIN HFA (ALBUTEROL SULFATE INHALATION [Concomitant]
  5. AEROSOL [Concomitant]
  6. BUPROPION HYDROCHLORIDE XL [Suspect]
     Active Substance: BUPROPION HYDROCHLORIDE
     Indication: DEPRESSION
     Dosage: ?          QUANTITY:1 TABLET(S);?
     Route: 048
     Dates: start: 20200110, end: 20200310
  7. DAILY MULIVITAMIN [Concomitant]

REACTIONS (5)
  - Product use complaint [None]
  - Tardive dyskinesia [None]
  - Dyskinesia [None]
  - Tremor [None]
  - Throat tightness [None]

NARRATIVE: CASE EVENT DATE: 20200310
